FAERS Safety Report 25969592 (Version 1)
Quarter: 2025Q4

REPORT INFORMATION
  Report Type: Report from Study
  Country: US (occurrence: None)
  Receive Date: 20251028
  Receipt Date: 20251028
  Transmission Date: 20260118
  Serious: Yes (Other)
  Sender: UCB
  Company Number: US-UCBSA-2025067002

PATIENT
  Age: 54 Year
  Weight: 63.9 kg

DRUGS (1)
  1. FENFLURAMINE [Suspect]
     Active Substance: FENFLURAMINE
     Indication: Product used for unknown indication
     Dosage: (0.07 MG/KG/DAY), 8.8 MILLIGRAM PER DAY

REACTIONS (1)
  - Mitral valve incompetence [Unknown]
